FAERS Safety Report 10820587 (Version 1)
Quarter: 2015Q1

REPORT INFORMATION
  Report Type: Spontaneous
  Country: TR (occurrence: None)
  Receive Date: 20150213
  Receipt Date: 20150213
  Transmission Date: 20150721
  Serious: Yes (Disabling)
  Sender: FDA-Public Use
  Company Number: 2015SEB00007

PATIENT
  Age: 90 Year
  Sex: Male

DRUGS (1)
  1. MIACALCIN [Suspect]
     Active Substance: CALCITONIN SALMON

REACTIONS (3)
  - Pain [None]
  - Abasia [None]
  - Disease progression [None]
